FAERS Safety Report 5735958-1 (Version None)
Quarter: 2008Q2

REPORT INFORMATION
  Report Type: 
  Country: None (occurrence: None)
  Receive Date: 20080509
  Receipt Date: 20080501
  Transmission Date: 20081010
  Serious: Yes (Other)
  Sender: FDA-Public Use
  Company Number: 2008003187

PATIENT
  Sex: Female
  Weight: 70.8 kg

DRUGS (1)
  1. ZYRTEC [Suspect]
     Indication: HYPERSENSITIVITY
     Dosage: AS NEEDED, ORAL
     Route: 048

REACTIONS (26)
  - ABDOMINAL DISTENSION [None]
  - ARTHRALGIA [None]
  - ARTHRITIS [None]
  - BALANCE DISORDER [None]
  - BREAST MASS [None]
  - CELLULITIS [None]
  - DIZZINESS [None]
  - DYSSTASIA [None]
  - ECZEMA [None]
  - EYE PAIN [None]
  - EYE SWELLING [None]
  - FOAMING AT MOUTH [None]
  - GAIT DISTURBANCE [None]
  - GASTRIC DISORDER [None]
  - HAIR DISORDER [None]
  - MOVEMENT DISORDER [None]
  - MUSCLE SPASMS [None]
  - OEDEMA PERIPHERAL [None]
  - ONYCHOCLASIS [None]
  - PAIN [None]
  - PAIN IN EXTREMITY [None]
  - RASH [None]
  - SCAR [None]
  - SKIN FISSURES [None]
  - SPIDER VEIN [None]
  - VERTIGO [None]
